FAERS Safety Report 20476669 (Version 3)
Quarter: 2022Q2

REPORT INFORMATION
  Report Type: Spontaneous
  Country: US (occurrence: US)
  Receive Date: 20220215
  Receipt Date: 20220404
  Transmission Date: 20220721
  Serious: No
  Sender: FDA-Public Use
  Company Number: US-SA-SAC20220206000114

PATIENT
  Age: 53 Year
  Sex: Male

DRUGS (4)
  1. FABRAZYME [Suspect]
     Active Substance: AGALSIDASE BETA
     Indication: Fabry^s disease
     Dosage: 70 MG, QOW
     Route: 042
     Dates: start: 201809, end: 20211231
  2. FABRAZYME [Suspect]
     Active Substance: AGALSIDASE BETA
     Dosage: 18 MG, QOW
     Route: 042
     Dates: start: 201809, end: 20211231
  3. FABRAZYME [Suspect]
     Active Substance: AGALSIDASE BETA
     Dosage: 70 MG, QOW
     Route: 042
  4. FABRAZYME [Suspect]
     Active Substance: AGALSIDASE BETA
     Dosage: 18 MG, QOW
     Route: 042

REACTIONS (5)
  - Infusion site reaction [Unknown]
  - Infusion site swelling [Unknown]
  - Infusion site discomfort [Unknown]
  - Infusion site extravasation [Unknown]
  - Product dose omission issue [Unknown]

NARRATIVE: CASE EVENT DATE: 20220101
